FAERS Safety Report 7887160-5 (Version None)
Quarter: 2011Q4

REPORT INFORMATION
  Report Type: 
  Country: None (occurrence: None)
  Receive Date: 20111102
  Receipt Date: 20111020
  Transmission Date: 20120403
  Serious: Yes (Hospitalization, Other)
  Sender: FDA-Public Use
  Company Number: US-ELI_LILLY_AND_COMPANY-US201109006036

PATIENT
  Sex: Female
  Weight: 60.771 kg

DRUGS (8)
  1. ATIVAN [Concomitant]
  2. FORTEO [Suspect]
     Indication: OSTEOPOROSIS
     Dosage: 20 UG, QD
     Route: 058
     Dates: start: 20100420
  3. SEROQUEL [Concomitant]
  4. METOPROLOL TARTRATE [Concomitant]
  5. PRILOSEC [Concomitant]
  6. ZOLOFT [Concomitant]
  7. SIMVASTATIN [Concomitant]
  8. ASPIRIN [Concomitant]

REACTIONS (2)
  - FALL [None]
  - RIB FRACTURE [None]
